FAERS Safety Report 11981537 (Version 5)
Quarter: 2016Q3

REPORT INFORMATION
  Report Type: Report from Study
  Country: JP (occurrence: JP)
  Receive Date: 20160130
  Receipt Date: 20160707
  Transmission Date: 20161109
  Serious: Yes (Death, Hospitalization, Other)
  Sender: FDA-Public Use
  Company Number: JP-B.I. PHARMACEUTICALS,INC./RIDGEFIELD-2016-BI-05875NB

PATIENT
  Age: 86 Year
  Sex: Male
  Weight: 45 kg

DRUGS (3)
  1. CARBOCISTEINE [Concomitant]
     Active Substance: CARBOCYSTEINE
     Indication: PRODUCT USED FOR UNKNOWN INDICATION
     Dosage: 1500 MG
     Route: 048
     Dates: start: 20141113, end: 20151226
  2. OFEV [Suspect]
     Active Substance: NINTEDANIB
     Dosage: 200 MG
     Route: 048
     Dates: start: 20151219, end: 20160102
  3. OFEV [Suspect]
     Active Substance: NINTEDANIB
     Indication: IDIOPATHIC PULMONARY FIBROSIS
     Dosage: 300 MG
     Route: 048
     Dates: start: 20151205, end: 20151218

REACTIONS (5)
  - Idiopathic pulmonary fibrosis [Fatal]
  - Drug-induced liver injury [Unknown]
  - Respiratory failure [Fatal]
  - General physical health deterioration [Unknown]
  - Cardiac failure [Fatal]

NARRATIVE: CASE EVENT DATE: 20151217
